FAERS Safety Report 9543157 (Version 1)
Quarter: 2013Q3

REPORT INFORMATION
  Report Type: Spontaneous
  Country: US (occurrence: US)
  Receive Date: 20130923
  Receipt Date: 20130923
  Transmission Date: 20140515
  Serious: No
  Sender: FDA-Public Use
  Company Number: US-PURDUE-USA-2012-0088752

PATIENT
  Age: 82 Year
  Sex: Female

DRUGS (1)
  1. DILAUDID TABLET [Suspect]
     Indication: PAIN
     Dosage: UNK

REACTIONS (3)
  - Unevaluable event [Unknown]
  - Nausea [Unknown]
  - Drug hypersensitivity [Unknown]
